FAERS Safety Report 8515013-8 (Version None)
Quarter: 2012Q3

REPORT INFORMATION
  Report Type: 
  Country: None (occurrence: None)
  Receive Date: 20120717
  Receipt Date: 20120706
  Transmission Date: 20120928
  Serious: Yes (Other)
  Sender: FDA-Public Use
  Company Number: JP-VERTEX PHARMACEUTICALS INC.-AE-2012-010093

PATIENT
  Age: 30 Year
  Sex: Male

DRUGS (5)
  1. RIBAVIRIN [Concomitant]
     Indication: HEPATITIS C
     Route: 048
     Dates: start: 20120404, end: 20120502
  2. ALLEGRA [Concomitant]
     Route: 048
     Dates: start: 20120404, end: 20120502
  3. TELAVIC (TELAPREVIR) [Suspect]
     Indication: HEPATITIS C
     Route: 048
     Dates: start: 20120404, end: 20120502
  4. PEGINTERFERON ALFA-2B [Concomitant]
     Indication: HEPATITIS C
     Route: 058
     Dates: start: 20120404, end: 20120502
  5. VOLTAREN [Concomitant]
     Route: 048
     Dates: start: 20120404, end: 20120502

REACTIONS (2)
  - MALAISE [None]
  - NAUSEA [None]
